FAERS Safety Report 9378907 (Version 2)
Quarter: 2013Q3

REPORT INFORMATION
  Report Type: Spontaneous
  Country: US (occurrence: US)
  Receive Date: 20130702
  Receipt Date: 20130812
  Transmission Date: 20140515
  Serious: No
  Sender: FDA-Public Use
  Company Number: US-PFIZER INC-2013194328

PATIENT
  Sex: Female

DRUGS (3)
  1. SUTENT [Suspect]
     Indication: RENAL CANCER
     Dosage: 50 MG, 1X/DAY
     Route: 048
     Dates: start: 201206
  2. SUTENT [Suspect]
     Dosage: 25 MG (SHE TOOK TWO CAPSULES OF 12.5MG TO MAKE A TOTAL DOSE OF 25MG), 1X/DAY
     Route: 048
  3. SYNTHROID [Concomitant]
     Indication: THYROID DISORDER
     Dosage: UNK

REACTIONS (5)
  - Hypertension [Unknown]
  - Neuropathy peripheral [Unknown]
  - Oral pain [Unknown]
  - Diarrhoea [Unknown]
  - Drug intolerance [Unknown]
